FAERS Safety Report 9969954 (Version 1)
Quarter: 2014Q1

REPORT INFORMATION
  Report Type: Spontaneous
  Country: US (occurrence: None)
  Receive Date: 20140131
  Receipt Date: 20140131
  Transmission Date: 20141002
  Serious: Yes (Other)
  Sender: FDA-Public Use
  Company Number: 073942

PATIENT
  Sex: Female
  Weight: 64.8 kg

DRUGS (4)
  1. KEPPRA [Suspect]
     Indication: CONVULSION
     Dates: end: 2012
  2. PAROXETINE [Concomitant]
  3. ROBAXIN /00047901/ [Concomitant]
  4. BUSPAN [Concomitant]

REACTIONS (1)
  - Convulsion [None]
